FAERS Safety Report 4491664-5 (Version None)
Quarter: 2004Q4

REPORT INFORMATION
  Report Type: 
  Country: None (occurrence: None)
  Receive Date: 20041103
  Receipt Date: 20041020
  Transmission Date: 20050328
  Serious: Yes (Hospitalization, Other)
  Sender: FDA-Public Use
  Company Number: PHEH2004US11329

PATIENT
  Age: 63 Year
  Sex: Female

DRUGS (6)
  1. GLEEVEC [Suspect]
     Indication: CHRONIC MYELOID LEUKAEMIA
     Dosage: 800 MG, QD
     Route: 048
     Dates: start: 20040419, end: 20041018
  2. GLEEVEC [Suspect]
     Dosage: 400 MG, QD
     Route: 048
  3. BUMEX [Concomitant]
     Indication: OEDEMA
     Dosage: 10 MG, QD
     Route: 048
  4. THYROID TAB [Concomitant]
     Indication: HYPOTHYROIDISM
     Dosage: 60 GRAINS, QD
     Route: 048
  5. OXYCONTIN [Concomitant]
     Indication: PAIN
     Dosage: 100 MG, BID
     Route: 048
  6. COUMADIN [Concomitant]
     Indication: DEEP VEIN THROMBOSIS

REACTIONS (4)
  - CARDIOMEGALY [None]
  - DYSPNOEA [None]
  - PERICARDIAL EFFUSION [None]
  - PLEURAL EFFUSION [None]
